FAERS Safety Report 15831096 (Version 1)
Quarter: 2019Q1

REPORT INFORMATION
  Report Type: Report from Study
  Country: IT (occurrence: IT)
  Receive Date: 20190116
  Receipt Date: 20190116
  Transmission Date: 20190417
  Serious: Yes (Hospitalization)
  Sender: FDA-Public Use
  Company Number: IT-TEVA-2019-IT-998823

PATIENT
  Age: 72 Year
  Sex: Male
  Weight: 70 kg

DRUGS (4)
  1. MABTHERA [Suspect]
     Active Substance: RITUXIMAB
     Indication: LYMPHOMA
     Dates: start: 20180330, end: 20180904
  2. ENDOXAN BAXTER [Suspect]
     Active Substance: CYCLOPHOSPHAMIDE
     Indication: LYMPHOMA
     Dates: start: 20180330, end: 20180904
  3. MYOCET 50 MG POWDER, DISPERSION AND SOLVENT FOR CONCENTRATE FOR DISPER [Suspect]
     Active Substance: DOXORUBICIN
     Indication: LYMPHOMA
     Dates: start: 20180330, end: 20180904
  4. VINCRISTINA TEVA [Suspect]
     Active Substance: VINCRISTINE
     Indication: LYMPHOMA
     Dates: start: 20180330, end: 20180904

REACTIONS (1)
  - Febrile neutropenia [Recovered/Resolved]

NARRATIVE: CASE EVENT DATE: 20180904
